FAERS Safety Report 13081129 (Version 1)
Quarter: 2017Q1

REPORT INFORMATION
  Report Type: Report from Study
  Country: US (occurrence: CZ)
  Receive Date: 20170103
  Receipt Date: 20170103
  Transmission Date: 20170428
  Serious: Yes (Other)
  Sender: FDA-Public Use
  Company Number: US-BAYER-2016-244979

PATIENT
  Sex: Male

DRUGS (1)
  1. BETAFERON [Suspect]
     Active Substance: INTERFERON BETA-1B
     Dosage: 0.5 ML, UNK

REACTIONS (3)
  - Visual impairment [None]
  - Loss of consciousness [Recovered/Resolved]
  - Paraesthesia [None]

NARRATIVE: CASE EVENT DATE: 20161218
